FAERS Safety Report 5573404-1 (Version None)
Quarter: 2007Q4

REPORT INFORMATION
  Report Type: 
  Country: None (occurrence: None)
  Receive Date: 20071226
  Receipt Date: 20071219
  Transmission Date: 20080405
  Serious: Yes (Life-Threatening, Hospitalization)
  Sender: FDA-Public Use
  Company Number: US-JNJFOC-20071004826

PATIENT
  Age: 70 Year
  Sex: Male
  Weight: 71.2 kg

DRUGS (11)
  1. DOXORUBICIN HCL [Suspect]
     Indication: DIFFUSE LARGE B-CELL LYMPHOMA
     Dosage: 40MG/M2, 1ST CYCLE, TOTAL COURSE DOSE 74MG
     Route: 042
  2. RITUXIMAB [Suspect]
     Indication: DIFFUSE LARGE B-CELL LYMPHOMA
     Dosage: 375MG/M2, CYCLE 1, TOTAL COURSE DOSE 690MG
     Route: 065
  3. CYCLOPHOSPHAMIDE [Suspect]
     Indication: DIFFUSE LARGE B-CELL LYMPHOMA
     Dosage: 750MG/M2, CYCLE 1, TOTAL COURSE DOSE 1380MG
     Route: 065
  4. NEULASTA [Suspect]
     Indication: DIFFUSE LARGE B-CELL LYMPHOMA
     Dosage: CYCLE 1, TOTAL COURSE DOSE 6MG
     Route: 058
  5. PREDNISONE [Suspect]
     Indication: DIFFUSE LARGE B-CELL LYMPHOMA
     Dosage: 40MG/M2, CYCLE 1, TOTAL COURSE DOSE 400MG
     Route: 048
  6. VINCRISTINE [Suspect]
     Indication: DIFFUSE LARGE B-CELL LYMPHOMA
     Dosage: CYCLE 1, TOTAL COURSE DOSE 2MG
     Route: 065
  7. PHENERGAN HCL [Concomitant]
     Route: 065
  8. DARVON [Concomitant]
     Route: 065
  9. VALTREX [Concomitant]
     Route: 065
  10. COREG CR [Concomitant]
     Route: 065
  11. AVODART [Concomitant]
     Route: 065

REACTIONS (8)
  - ABDOMINAL PAIN [None]
  - COLITIS [None]
  - DIARRHOEA [None]
  - FEBRILE NEUTROPENIA [None]
  - HAEMOGLOBIN ABNORMAL [None]
  - PLATELET DISORDER [None]
  - THROMBOSIS [None]
  - WHITE BLOOD CELL DISORDER [None]
